FAERS Safety Report 17478785 (Version 1)
Quarter: 2020Q1

REPORT INFORMATION
  Report Type: Spontaneous
  Country: RO (occurrence: RO)
  Receive Date: 20200228
  Receipt Date: 20200228
  Transmission Date: 20200409
  Serious: Yes (Other)
  Sender: FDA-Public Use
  Company Number: RO-US-PROVELL PHARMACEUTICALS LLC-9147549

PATIENT

DRUGS (1)
  1. EUTHYROX [Suspect]
     Active Substance: LEVOTHYROXINE SODIUM
     Indication: HYPOTHYROIDISM
     Dosage: PC 04054839706103, FN 10474142298

REACTIONS (3)
  - Heart rate decreased [Not Recovered/Not Resolved]
  - Wrong technique in product usage process [Unknown]
  - Intracranial pressure increased [Not Recovered/Not Resolved]
